FAERS Safety Report 18350886 (Version 2)
Quarter: 2021Q1

REPORT INFORMATION
  Report Type: Report from Study
  Country: FR (occurrence: FR)
  Receive Date: 20201006
  Receipt Date: 20210329
  Transmission Date: 20210419
  Serious: Yes (Hospitalization)
  Sender: FDA-Public Use
  Company Number: FR-JNJFOC-20200942448

PATIENT
  Age: 73 Year
  Sex: Male
  Weight: 69.5 kg

DRUGS (3)
  1. EFFERALGAN COD. [Concomitant]
     Active Substance: ACETAMINOPHEN\CODEINE PHOSPHATE
     Indication: NEOPLASM PROPHYLAXIS
     Route: 048
  2. TRABECTEDIN [Suspect]
     Active Substance: TRABECTEDIN
     Indication: SARCOMA
     Dosage: CYCLICAL
     Route: 042
     Dates: start: 20200729
  3. ARIXTRA [Concomitant]
     Active Substance: FONDAPARINUX SODIUM
     Indication: PHLEBITIS SUPERFICIAL
     Route: 042
     Dates: start: 201903

REACTIONS (1)
  - Catheter site inflammation [Recovered/Resolved]

NARRATIVE: CASE EVENT DATE: 20200826
